FAERS Safety Report 24971796 (Version 1)
Quarter: 2025Q1

REPORT INFORMATION
  Report Type: Spontaneous
  Country: SK (occurrence: SK)
  Receive Date: 20250214
  Receipt Date: 20250214
  Transmission Date: 20250408
  Serious: Yes (Hospitalization)
  Sender: PFIZER
  Company Number: SK-PFIZER INC-PV202500018423

PATIENT
  Age: 74 Year
  Sex: Female

DRUGS (1)
  1. LORLATINIB [Suspect]
     Active Substance: LORLATINIB
     Indication: Non-small cell lung cancer

REACTIONS (4)
  - Dermatitis exfoliative generalised [Unknown]
  - Tremor [Unknown]
  - Swelling [Unknown]
  - Hypertension [Unknown]
